FAERS Safety Report 7755746-4 (Version None)
Quarter: 2011Q3

REPORT INFORMATION
  Report Type: 
  Country: None (occurrence: None)
  Receive Date: 20110916
  Receipt Date: 20110909
  Transmission Date: 20111222
  Serious: Yes (Other)
  Sender: FDA-Public Use
  Company Number: PHHY2011ES80377

PATIENT
  Age: 70 Year
  Sex: Male

DRUGS (1)
  1. MIACALCIN [Suspect]
     Dosage: 200 IU, UNK
     Route: 045

REACTIONS (2)
  - HYPERSENSITIVITY [None]
  - ERYTHEMA [None]
